FAERS Safety Report 13181752 (Version 10)
Quarter: 2019Q2

REPORT INFORMATION
  Report Type: Spontaneous
  Country: US (occurrence: US)
  Receive Date: 20170202
  Receipt Date: 20190531
  Transmission Date: 20190711
  Serious: Yes (Hospitalization)
  Sender: FDA-Public Use
  Company Number: US-ACTELION-A-US2017-149411

PATIENT
  Age: 68 Year
  Sex: Female
  Weight: 100.68 kg

DRUGS (13)
  1. LANTUS [Concomitant]
     Active Substance: INSULIN GLARGINE
     Dosage: 55 U, QD
     Dates: start: 2014
  2. METOPROLOL SUCCINATE. [Suspect]
     Active Substance: METOPROLOL SUCCINATE
     Indication: PRODUCT USED FOR UNKNOWN INDICATION
     Dosage: 100 MG, QD
     Route: 065
  3. OXYGEN. [Concomitant]
     Active Substance: OXYGEN
     Dosage: UNK, CONT INFUS
  4. AMLODIPINE [Concomitant]
     Active Substance: AMLODIPINE BESYLATE
  5. ADCIRCA [Suspect]
     Active Substance: TADALAFIL
     Indication: PRODUCT USED FOR UNKNOWN INDICATION
     Dosage: 40 MG, QD
     Route: 048
     Dates: start: 20190129
  6. NORVASC [Concomitant]
     Active Substance: AMLODIPINE BESYLATE
  7. BENICAR [Concomitant]
     Active Substance: OLMESARTAN MEDOXOMIL
  8. OPSUMIT [Suspect]
     Active Substance: MACITENTAN
     Indication: PULMONARY HYPERTENSION
     Dosage: 10 MG, QD
     Route: 048
     Dates: start: 20150603
  9. HYZAAR [Concomitant]
     Active Substance: HYDROCHLOROTHIAZIDE\LOSARTAN POTASSIUM
     Dosage: 100 - 12.5
  10. METOPROLOL SUCCINATE. [Suspect]
     Active Substance: METOPROLOL SUCCINATE
     Dosage: 50 MG, QD
     Route: 065
     Dates: end: 20190318
  11. GABAPENTIN. [Concomitant]
     Active Substance: GABAPENTIN
     Dosage: 300 MG, QHS
     Dates: start: 20151229
  12. TOPROL XL [Concomitant]
     Active Substance: METOPROLOL SUCCINATE
     Dosage: 50 MG, QD
     Dates: start: 20160906
  13. LOSARTAN. [Concomitant]
     Active Substance: LOSARTAN

REACTIONS (12)
  - Vertigo [Unknown]
  - Heart rate decreased [Unknown]
  - Bradycardia [Recovering/Resolving]
  - Hypertension [Unknown]
  - Heart rate increased [Unknown]
  - Feeling abnormal [Unknown]
  - Diarrhoea [Unknown]
  - Sciatica [Unknown]
  - Dizziness [Unknown]
  - Palpitations [Recovering/Resolving]
  - Pneumonia bacterial [Recovering/Resolving]
  - Nausea [Unknown]

NARRATIVE: CASE EVENT DATE: 2017
